FAERS Safety Report 4718025-5 (Version None)
Quarter: 2005Q3

REPORT INFORMATION
  Report Type: 
  Country: None (occurrence: None)
  Receive Date: 20050718
  Receipt Date: 20050322
  Transmission Date: 20060218
  Serious: No
  Sender: FDA-Public Use
  Company Number: 2005000594

PATIENT
  Age: 77 Year
  Weight: 45.3597 kg

DRUGS (5)
  1. TARCEVA [Suspect]
     Indication: NON-SMALL CELL LUNG CANCER
     Dosage: (QD)
     Dates: start: 20050304
  2. WARFARIN SODIUM [Concomitant]
  3. LIPITOR [Concomitant]
  4. VITAMINS (VITAMINS) [Concomitant]
  5. ASPIRIN [Concomitant]

REACTIONS (3)
  - EPISTAXIS [None]
  - PRURITUS [None]
  - RASH [None]
